FAERS Safety Report 22156793 (Version 2)
Quarter: 2023Q2

REPORT INFORMATION
  Report Type: Spontaneous
  Country: US (occurrence: US)
  Receive Date: 20230330
  Receipt Date: 20230406
  Transmission Date: 20230722
  Serious: Yes (Hospitalization, Other)
  Sender: FDA-Public Use
  Company Number: US-PFIZER INC-PV202300057079

PATIENT
  Age: 58 Year
  Sex: Female

DRUGS (3)
  1. IBRANCE [Suspect]
     Active Substance: PALBOCICLIB
     Indication: Breast cancer female
     Dosage: 75 MG, CYCLIC (TAKE 1 TAB PO DAILY (7 DAYS ON, 7 DAYS OFF) REPEAT Q 28 DAYS.#14)
     Route: 048
  2. IBRANCE [Suspect]
     Active Substance: PALBOCICLIB
     Indication: Hormone receptor positive breast cancer
  3. DENOSUMAB [Concomitant]
     Active Substance: DENOSUMAB
     Dosage: UNK

REACTIONS (16)
  - Fall [Unknown]
  - Weight increased [Unknown]
  - Neutropenia [Unknown]
  - Adjustment disorder with depressed mood [Unknown]
  - Decreased appetite [Unknown]
  - Cognitive disorder [Unknown]
  - Weight decreased [Unknown]
  - Insomnia [Unknown]
  - Memory impairment [Unknown]
  - Urinary tract infection [Unknown]
  - Blood creatinine increased [Unknown]
  - Vitamin D deficiency [Unknown]
  - Epistaxis [Unknown]
  - Anaemia [Unknown]
  - Product use issue [Unknown]
  - Off label use [Unknown]
